FAERS Safety Report 26000822 (Version 1)
Quarter: 2025Q4

REPORT INFORMATION
  Report Type: Spontaneous
  Country: US (occurrence: US)
  Receive Date: 20251105
  Receipt Date: 20251105
  Transmission Date: 20260117
  Serious: No
  Sender: ANI
  Company Number: US-ANIPHARMA-2025-US-043559

PATIENT
  Age: 57 Year
  Sex: Female

DRUGS (2)
  1. COPAXONE [Concomitant]
     Active Substance: GLATIRAMER ACETATE
  2. CORTICOTROPIN [Suspect]
     Active Substance: CORTICOTROPIN
     Indication: Rheumatoid arthritis
     Dosage: 80 UNITS DAILY
     Route: 058
     Dates: start: 202507

REACTIONS (2)
  - Colitis ulcerative [Not Recovered/Not Resolved]
  - Disease progression [Not Recovered/Not Resolved]
